FAERS Safety Report 21164106 (Version 1)
Quarter: 2022Q3

REPORT INFORMATION
  Report Type: Spontaneous
  Country: IT (occurrence: IT)
  Receive Date: 20220803
  Receipt Date: 20220803
  Transmission Date: 20221027
  Serious: Yes (Hospitalization, Other)
  Sender: FDA-Public Use
  Company Number: None

PATIENT
  Age: 79 Year
  Sex: Male
  Weight: 66 kg

DRUGS (3)
  1. OXALIPLATIN [Suspect]
     Active Substance: OXALIPLATIN
     Indication: Rectal adenocarcinoma
     Dosage: 85MG / SQM Q14, DURATION: 30 DAYS, UNIT DOSE: 85 MG/M2
     Dates: start: 20220228, end: 20220330
  2. FLUOROURACIL [Suspect]
     Active Substance: FLUOROURACIL
     Indication: Rectal adenocarcinoma
     Dosage: 400MG / SQM + 2400MG / SQM IN 46 HOURS, DURATION: 30 DAYS, UNIT DOSE: 2800 MG/M2
     Dates: start: 20220228, end: 20220330
  3. CRESTOR [Concomitant]
     Active Substance: ROSUVASTATIN CALCIUM
     Indication: Hypercholesterolaemia
     Dosage: 10 MILLIGRAM DAILY;
     Dates: start: 201002

REACTIONS (4)
  - Sepsis [Recovering/Resolving]
  - Enteritis [Recovering/Resolving]
  - Thrombocytopenia [Recovering/Resolving]
  - Blood creatinine increased [Recovering/Resolving]

NARRATIVE: CASE EVENT DATE: 20220330
